FAERS Safety Report 15901548 (Version 1)
Quarter: 2019Q1

REPORT INFORMATION
  Report Type: Spontaneous
  Country: US (occurrence: US)
  Receive Date: 20190201
  Receipt Date: 20190201
  Transmission Date: 20190417
  Serious: Yes (Other)
  Sender: FDA-Public Use
  Company Number: US-TEVA-2019-US-1003636

PATIENT
  Sex: Male

DRUGS (1)
  1. HYDROXYUREA CAPSULES, USP [Suspect]
     Active Substance: HYDROXYUREA
     Indication: ACUTE LEUKAEMIA
     Route: 065

REACTIONS (2)
  - Malignant melanoma [Unknown]
  - Platelet count decreased [Unknown]
